FAERS Safety Report 14558938 (Version 1)
Quarter: 2018Q1

REPORT INFORMATION
  Report Type: Spontaneous
  Country: US (occurrence: US)
  Receive Date: 20180216
  Receipt Date: 20180216
  Transmission Date: 20180509
  Serious: Yes (Hospitalization, Congenital Anomaly, Other)
  Sender: FDA-Public Use
  Company Number: None

PATIENT
  Age: 0 Day
  Sex: Male

DRUGS (3)
  1. METHADONE [Suspect]
     Active Substance: METHADONE HYDROCHLORIDE
     Indication: ARTHRITIS
  2. ABILIFY [Suspect]
     Active Substance: ARIPIPRAZOLE
     Indication: BIPOLAR DISORDER
  3. KLONOPIN [Suspect]
     Active Substance: CLONAZEPAM
     Indication: ANXIETY

REACTIONS (13)
  - Visual acuity reduced [None]
  - Jaundice neonatal [None]
  - Cardiac murmur [None]
  - Group B streptococcus neonatal sepsis [None]
  - Auditory disorder [None]
  - Transient tachypnoea of the newborn [None]
  - Drug withdrawal syndrome neonatal [None]
  - Preterm premature rupture of membranes [None]
  - Atrial septal defect [None]
  - Pulmonary artery stenosis congenital [None]
  - Hyperbilirubinaemia neonatal [None]
  - Craniosynostosis [None]
  - Strabismus [None]

NARRATIVE: CASE EVENT DATE: 20160325
